FAERS Safety Report 6171127-1 (Version None)
Quarter: 2009Q2

REPORT INFORMATION
  Report Type: 
  Country: None (occurrence: None)
  Receive Date: 20090429
  Receipt Date: 20090424
  Transmission Date: 20091009
  Serious: Yes (Hospitalization)
  Sender: FDA-Public Use
  Company Number: FR-BRISTOL-MYERS SQUIBB COMPANY-14425862

PATIENT
  Age: 70 Year
  Sex: Female
  Weight: 58 kg

DRUGS (7)
  1. IXABEPILONE [Suspect]
     Indication: BREAST CANCER
     Route: 042
     Dates: start: 20081113, end: 20081113
  2. CYCLOPHOSPHAMIDE [Suspect]
     Indication: BREAST CANCER
     Dosage: STARTED ON 21AUG08.
     Route: 042
     Dates: start: 20081023, end: 20081023
  3. EPIRUBICIN [Suspect]
     Indication: BREAST CANCER
     Dosage: STARTED ON 021AUG08.
     Route: 042
     Dates: start: 20081023, end: 20081023
  4. FLUOROURACIL [Suspect]
     Indication: BREAST CANCER
     Dosage: STARTED ON 21AUG2008.
     Route: 042
     Dates: start: 20081023, end: 20081023
  5. KYTRIL [Suspect]
     Indication: PREMEDICATION
     Dosage: ROUTE OF ADMINSTRATION:IV THERAPY DATES: 23OCT08-23OCT08 EVERY 3 WEEKS
     Route: 048
     Dates: start: 20081113, end: 20081116
  6. ONDANSETRON HCL [Suspect]
     Indication: PREMEDICATION
     Route: 042
     Dates: start: 20080821, end: 20081023
  7. SOLU-MEDROL [Concomitant]
     Indication: PREMEDICATION
     Dates: start: 20080821, end: 20081023

REACTIONS (1)
  - HEADACHE [None]
